FAERS Safety Report 4646760-6 (Version None)
Quarter: 2005Q2

REPORT INFORMATION
  Report Type: 
  Country: None (occurrence: None)
  Receive Date: 20050425
  Receipt Date: 20050425
  Transmission Date: 20051028
  Serious: Yes (Hospitalization)
  Sender: FDA-Public Use
  Company Number: None

PATIENT
  Age: 65 Year
  Sex: Male
  Weight: 111.1313 kg

DRUGS (2)
  1. WARFARIN [Suspect]
     Indication: PULMONARY EMBOLISM
     Dosage: 7.5MG/5MG   QD    ORAL
     Route: 048
     Dates: start: 20040915, end: 20050201
  2. LOVENOX [Concomitant]

REACTIONS (1)
  - TONGUE HAEMORRHAGE [None]
